FAERS Safety Report 23335338 (Version 1)
Quarter: 2023Q4

REPORT INFORMATION
  Report Type: Spontaneous
  Country: US (occurrence: US)
  Receive Date: 20231225
  Receipt Date: 20231225
  Transmission Date: 20240110
  Serious: Yes (Death, Other)
  Sender: FDA-Public Use
  Company Number: US-JNJFOC-20231240553

PATIENT

DRUGS (2)
  1. IMBRUVICA [Suspect]
     Active Substance: IBRUTINIB
     Indication: Lymphocytic lymphoma
     Route: 048
  2. ZANUBRUTINIB [Suspect]
     Active Substance: ZANUBRUTINIB
     Indication: Lymphocytic lymphoma
     Route: 048

REACTIONS (15)
  - Myocardial infarction [Fatal]
  - Atrial fibrillation [Unknown]
  - Hypertension [Unknown]
  - COVID-19 [Unknown]
  - Ventricular fibrillation [Unknown]
  - Cardiac failure [Unknown]
  - Cardiac arrest [Fatal]
  - Atrial flutter [Unknown]
  - Palpitations [Unknown]
  - Neutropenia [Unknown]
  - Dilated cardiomyopathy [Fatal]
  - Infection [Unknown]
  - Cardiac failure acute [Fatal]
  - Upper respiratory tract infection [Unknown]
  - Diarrhoea [Unknown]
